FAERS Safety Report 9251184 (Version 1)
Quarter: 2013Q1

REPORT INFORMATION
  Report Type: Spontaneous
  Country: US (occurrence: None)
  Receive Date: 20130305
  Receipt Date: 20130305
  Transmission Date: 20140127
  Serious: Yes (Other)
  Sender: FDA-Public Use
  Company Number: 163-21880-12060281 (0)

PATIENT
  Age: 59 Year
  Sex: Male

DRUGS (14)
  1. REVLIMID [Suspect]
     Indication: PLASMA CELL MYELOMA
     Dosage: 15 MG, 1 IN 1 D
     Route: 048
     Dates: start: 201203
  2. TRIAMTERENE/ HCTZ (DYAZIDE) [Concomitant]
  3. OMEPRAZOLE (OMEPRAZOLE) (CAPSULES) [Concomitant]
  4. ACYCLOVIR (ACICLOVIR) (TABLETS) [Concomitant]
  5. METOPROLOL TARTRATE (METOPROLOL TARTRATE) (TABLETS) (METOPROLOL TARTRATE) [Concomitant]
  6. SULFAMETH / TRIMETHOPRIM (BACTRIM) [Concomitant]
  7. METFORMIN (METFORMIN) (TABLETS) [Concomitant]
  8. CROMOLYN SODIUM (CROMOGLICATE SODIUM) (OPHTHALMIC) [Concomitant]
  9. POLYETHYLENE GLYCOL (MACROGOL) [Concomitant]
  10. GLIPIZIDE (GLIPIZIDE) (TABLETS) [Concomitant]
  11. SENNA LAX (SENNOSIDE A+B) (TABLETS) [Concomitant]
  12. CHLORPROMAZINE (CHLORPROMAZINE) (TABLETS) [Concomitant]
  13. DEXAMETHASONE (DEXAMETHASONE) (TABLETS) [Concomitant]
  14. NIFEDICAL XL (NIFEDIPINE) (TABLETS) [Concomitant]

REACTIONS (1)
  - Full blood count decreased [None]
